FAERS Safety Report 24940800 (Version 1)
Quarter: 2025Q1

REPORT INFORMATION
  Report Type: Spontaneous
  Country: AU (occurrence: AU)
  Receive Date: 20250207
  Receipt Date: 20250207
  Transmission Date: 20250408
  Serious: Yes (Hospitalization)
  Sender: DR REDDYS
  Company Number: AU-AUS-AUS/2025/01/001744

PATIENT
  Age: 7 Decade
  Sex: Male

DRUGS (5)
  1. PREGABALIN [Suspect]
     Active Substance: PREGABALIN
     Indication: Pain
     Dosage: 150 MG TWO TIMES PER DAY
  2. FENTANYL [Suspect]
     Active Substance: FENTANYL
     Indication: Pain
     Dosage: PATCH 100 MCG PER HOUR
  3. MORPHINE [Suspect]
     Active Substance: MORPHINE
     Indication: Pain
     Dosage: MR 150 MG TWO TIMES PER DAY
  4. OXYCODONE [Suspect]
     Active Substance: OXYCODONE
     Indication: Pain
     Dosage: MR 100 MG TWO TIMES PER DAY
  5. GABAPENTIN [Suspect]
     Active Substance: GABAPENTIN
     Indication: Pain
     Dosage: 300 MG THREE TIMES PER DAY

REACTIONS (2)
  - Drug intolerance [Unknown]
  - Product use in unapproved indication [Unknown]
